FAERS Safety Report 15702577 (Version 1)
Quarter: 2018Q4

REPORT INFORMATION
  Report Type: Spontaneous
  Country: US (occurrence: US)
  Receive Date: 20181210
  Receipt Date: 20181210
  Transmission Date: 20190205
  Serious: No
  Sender: FDA-Public Use
  Company Number: US-KYOWAKIRIN-2018BKK004568

PATIENT

DRUGS (3)
  1. SANCUSO [Suspect]
     Active Substance: GRANISETRON
     Dosage: 1 DF, EVERY 7 DAYS
     Route: 061
     Dates: start: 201807
  2. SANCUSO [Suspect]
     Active Substance: GRANISETRON
     Indication: PROPHYLAXIS OF NAUSEA AND VOMITING
     Dosage: 1 DF, EVERY 7 DAYS
     Route: 061
     Dates: start: 201805, end: 2018
  3. SANCUSO [Suspect]
     Active Substance: GRANISETRON
     Dosage: 1 DF, EVERY 7 DAYS
     Route: 061
     Dates: start: 201807

REACTIONS (5)
  - Retching [Unknown]
  - Inappropriate schedule of product administration [Unknown]
  - Incorrect product administration duration [Unknown]
  - Nausea [Unknown]
  - Product adhesion issue [Unknown]

NARRATIVE: CASE EVENT DATE: 201805
